FAERS Safety Report 25032337 (Version 3)
Quarter: 2025Q3

REPORT INFORMATION
  Report Type: Report from Study
  Country: US (occurrence: US)
  Receive Date: 20250303
  Receipt Date: 20250804
  Transmission Date: 20251021
  Serious: Yes (Other)
  Sender: ABBVIE
  Company Number: US-ABBVIE-6152639

PATIENT
  Sex: Female

DRUGS (3)
  1. VENCLEXTA [Suspect]
     Active Substance: VENETOCLAX
     Indication: Chronic lymphocytic leukaemia
     Dosage: FOUR 100 MG VENETOCLAX ONCE DAILY, LAST ADM DATE 2024
     Route: 048
     Dates: start: 20240219
  2. VENCLEXTA [Suspect]
     Active Substance: VENETOCLAX
     Indication: Chronic lymphocytic leukaemia
     Dosage: FOUR 100 MG VENETOCLAX ONCE DAILY, LAST ADMIN DATE- JUL 2025
     Route: 048
     Dates: start: 202409
  3. VENCLEXTA [Suspect]
     Active Substance: VENETOCLAX
     Indication: Chronic lymphocytic leukaemia
     Dosage: TWO 100 MG VENETOCLAX ONCE DAILY
     Route: 048
     Dates: start: 202507

REACTIONS (7)
  - Skin cancer [Unknown]
  - Blood test abnormal [Recovering/Resolving]
  - Increased tendency to bruise [Unknown]
  - Precancerous skin lesion [Unknown]
  - Platelet count decreased [Unknown]
  - Neutrophil count decreased [Unknown]
  - Erythema [Unknown]
